FAERS Safety Report 5973519-X (Version None)
Quarter: 2008Q4

REPORT INFORMATION
  Report Type: 
  Country: None (occurrence: None)
  Receive Date: 20081201
  Receipt Date: 20081119
  Transmission Date: 20090506
  Serious: Yes (Hospitalization)
  Sender: FDA-Public Use
  Company Number: US-AVENTIS-200817026US

PATIENT
  Sex: Female
  Weight: 60 kg

DRUGS (4)
  1. BENZACLIN [Suspect]
     Indication: ACNE
     Dosage: DOSE: APPLIED TO FACE, AVOIDING EYES, NIGHTLY BEFORE BED
     Route: 061
     Dates: start: 20071101
  2. YASMIN [Concomitant]
     Dosage: DOSE: 1 A DAY
     Dates: start: 20061201, end: 20080926
  3. ONE-A-DAY                          /00156401/ [Concomitant]
     Dosage: DOSE: 1 A DAY
  4. VITAMIN B-12 [Concomitant]
     Indication: VITAMIN SUPPLEMENTATION
     Dosage: DOSE: UNK
     Dates: end: 20080101

REACTIONS (18)
  - AMNESIA [None]
  - ANGIOPATHY [None]
  - BACK PAIN [None]
  - BLINDNESS UNILATERAL [None]
  - DISTURBANCE IN ATTENTION [None]
  - EPSTEIN-BARR VIRUS TEST POSITIVE [None]
  - FATIGUE [None]
  - HEADACHE [None]
  - HYPOAESTHESIA [None]
  - MICTURITION URGENCY [None]
  - MOOD SWINGS [None]
  - NECK PAIN [None]
  - NERVOUS SYSTEM DISORDER [None]
  - OPTIC NEURITIS [None]
  - PERIPHERAL COLDNESS [None]
  - SOMNOLENCE [None]
  - URINARY INCONTINENCE [None]
  - VISUAL IMPAIRMENT [None]
